FAERS Safety Report 9820938 (Version 2)
Quarter: 2014Q1

REPORT INFORMATION
  Report Type: Report from Study
  Country: US (occurrence: US)
  Receive Date: 20140116
  Receipt Date: 20140116
  Transmission Date: 20141002
  Serious: Yes (Other)
  Sender: FDA-Public Use
  Company Number: US-ACTELION-A-US2009-29350

PATIENT
  Age: 37 Year
  Sex: Female

DRUGS (5)
  1. TRACLEER [Suspect]
     Indication: PULMONARY ARTERIAL HYPERTENSION
     Dosage: UNK, UNK
     Route: 048
     Dates: start: 20080519, end: 2009
  2. TRACLEER [Suspect]
     Dosage: 62.5 MG, BID
     Route: 048
     Dates: start: 2009, end: 200911
  3. TRACLEER [Suspect]
     Dosage: UNK
     Route: 048
     Dates: start: 2004
  4. TRACLEER [Suspect]
     Dosage: UNK
     Route: 048
  5. COUMADIN [Concomitant]

REACTIONS (1)
  - Pregnancy test false positive [Unknown]
